FAERS Safety Report 7635564-8 (Version None)
Quarter: 2011Q3

REPORT INFORMATION
  Report Type: 
  Country: None (occurrence: None)
  Receive Date: 20110726
  Receipt Date: 20110713
  Transmission Date: 20111222
  Serious: Yes (Hospitalization)
  Sender: FDA-Public Use
  Company Number: IT-JNJFOC-20110708149

PATIENT
  Sex: Female

DRUGS (3)
  1. TRAMADOL HCL [Suspect]
     Indication: PAIN
     Route: 048
     Dates: start: 20110615, end: 20110615
  2. ASPIRIN [Concomitant]
  3. DEFLAZACORT [Concomitant]

REACTIONS (3)
  - VOMITING [None]
  - NAUSEA [None]
  - VERTIGO [None]
